FAERS Safety Report 13810392 (Version 1)
Quarter: 2017Q3

REPORT INFORMATION
  Report Type: Spontaneous
  Country: US (occurrence: US)
  Receive Date: 20170728
  Receipt Date: 20170728
  Transmission Date: 20171127
  Serious: No
  Sender: FDA-Public Use
  Company Number: US-AKRIMAX-TIR-2017-0583

PATIENT

DRUGS (2)
  1. TIROSINT [Suspect]
     Active Substance: LEVOTHYROXINE SODIUM
     Dosage: 2 CAPSULES FOR 6 DAYS, 3 CAPSULES FOR 1 DAY, 2 CAPSULES FOR 5 DAYS, AND 3 CAPSULES FOR 2 DAYS
     Route: 048
  2. TIROSINT [Suspect]
     Active Substance: LEVOTHYROXINE SODIUM
     Indication: PRODUCT USED FOR UNKNOWN INDICATION
     Route: 048
     Dates: start: 201612

REACTIONS (3)
  - Hyperthyroidism [Unknown]
  - Hypothyroidism [Unknown]
  - Blood test abnormal [Unknown]
